FAERS Safety Report 7768351-0 (Version None)
Quarter: 2011Q3

REPORT INFORMATION
  Report Type: 
  Country: None (occurrence: None)
  Receive Date: 20110922
  Receipt Date: 20110705
  Transmission Date: 20111222
  Serious: No
  Sender: FDA-Public Use
  Company Number: US-ASTRAZENECA-2011SE40448

PATIENT
  Age: 53 Year

DRUGS (14)
  1. ANDROGEL [Concomitant]
     Dosage: PUMP 6 SQRT, 150 MG
  2. OMEPRAZOLE [Suspect]
     Route: 048
  3. COZAAR [Concomitant]
  4. HYDROCODONE [Concomitant]
     Dosage: 5 MG / 325 MG EVERY 4 HOURS
  5. SEROQUEL [Suspect]
     Route: 048
  6. LITHIUM CARBONATE ER [Concomitant]
  7. SYNTHROID [Concomitant]
  8. NIASPAN [Concomitant]
  9. LIPITOR [Concomitant]
  10. CITALOPRAM HYDROBROMIDE [Concomitant]
  11. CLONAZEPAM [Concomitant]
  12. METFORMIN [Concomitant]
  13. HYDROCHLOROTHIAZIDE [Concomitant]
     Dosage: 12.5 MG
  14. OXYCODONE HCL [Concomitant]
     Dosage: 10 MG/325 MG EVERY 4 HOURS.

REACTIONS (1)
  - DIABETES MELLITUS [None]
